FAERS Safety Report 6537903-8 (Version None)
Quarter: 2010Q1

REPORT INFORMATION
  Report Type: 
  Country: None (occurrence: None)
  Receive Date: 20100114
  Receipt Date: 20100107
  Transmission Date: 20100710
  Serious: Yes (Other)
  Sender: FDA-Public Use
  Company Number: JP-MERCK-1001USA00914

PATIENT

DRUGS (4)
  1. EMEND [Suspect]
     Indication: PROPHYLAXIS OF NAUSEA AND VOMITING
     Route: 048
     Dates: start: 20100106
  2. BRIPLATIN [Concomitant]
     Route: 065
     Dates: start: 20100106
  3. CAMPTOSAR [Concomitant]
     Route: 042
     Dates: start: 20100106
  4. DEPAKENE [Concomitant]
     Route: 065

REACTIONS (1)
  - CONVULSION [None]
